FAERS Safety Report 15979944 (Version 2)
Quarter: 2019Q1

REPORT INFORMATION
  Report Type: Spontaneous
  Country: IT (occurrence: IT)
  Receive Date: 20190219
  Receipt Date: 20190318
  Transmission Date: 20190418
  Serious: Yes (Other)
  Sender: FDA-Public Use
  Company Number: IT-CPL-000310

PATIENT
  Age: 77 Year
  Sex: Male
  Weight: 84 kg

DRUGS (10)
  1. MEMANTINE. [Concomitant]
     Active Substance: MEMANTINE
  2. QUETIAPINE/QUETIAPINE FUMARATE [Suspect]
     Active Substance: QUETIAPINE FUMARATE
     Indication: COGNITIVE DISORDER
     Dates: start: 20170410, end: 20180128
  3. METFORMIN [Concomitant]
     Active Substance: METFORMIN HYDROCHLORIDE
     Route: 048
     Dates: start: 20170710, end: 20180302
  4. SERTRALINE [Concomitant]
     Active Substance: SERTRALINE HYDROCHLORIDE
  5. DONEPEZIL. [Suspect]
     Active Substance: DONEPEZIL
     Indication: COGNITIVE DISORDER
     Dates: start: 20170710, end: 20180302
  6. TRITTICO [Suspect]
     Active Substance: TRAZODONE HYDROCHLORIDE
     Indication: PRODUCT USED FOR UNKNOWN INDICATION
     Dosage: STRENGTH: 25 MG/ML
  7. TRIATEC [Concomitant]
  8. CARDIOASPIRIN [Concomitant]
     Active Substance: ASPIRIN
  9. JUMEX [Concomitant]
     Active Substance: SELEGILINE HYDROCHLORIDE
     Dosage: STRENGTH: 5 MG
  10. SINEMET [Suspect]
     Active Substance: CARBIDOPA\LEVODOPA
     Indication: PARKINSON^S DISEASE
     Dosage: STRENGTH: 100 MG + 25 MG

REACTIONS (5)
  - Foaming at mouth [Recovering/Resolving]
  - Dyskinesia [Recovering/Resolving]
  - Syncope [Recovering/Resolving]
  - Drug abuse [Unknown]
  - Fall [None]

NARRATIVE: CASE EVENT DATE: 20180120
